FAERS Safety Report 9281575 (Version 1)
Quarter: 2013Q2

REPORT INFORMATION
  Report Type: Report from Study
  Country: US (occurrence: US)
  Receive Date: 20130509
  Receipt Date: 20130509
  Transmission Date: 20140414
  Serious: Yes (Hospitalization)
  Sender: FDA-Public Use
  Company Number: US-US-EMD SERONO, INC.-7209429

PATIENT
  Sex: Female

DRUGS (2)
  1. REBIF [Suspect]
     Indication: PRODUCT USED FOR UNKNOWN INDICATION
     Route: 058
     Dates: start: 20090122
  2. TYLENOL                            /00020001/ [Concomitant]
     Indication: PREMEDICATION

REACTIONS (3)
  - Appendicitis [Recovered/Resolved]
  - Tooth extraction [Unknown]
  - Musculoskeletal chest pain [Recovered/Resolved]
